FAERS Safety Report 23074518 (Version 5)
Quarter: 2023Q4

REPORT INFORMATION
  Report Type: Report from Study
  Country: EG (occurrence: EG)
  Receive Date: 20231017
  Receipt Date: 20231212
  Transmission Date: 20240109
  Serious: Yes (Hospitalization)
  Sender: FDA-Public Use
  Company Number: EG-Eisai Medical Research-EC-2023-150169

PATIENT
  Sex: Male

DRUGS (4)
  1. LENVIMA [Suspect]
     Active Substance: LENVATINIB
     Indication: Renal cell carcinoma
     Dosage: DOSE AND FREQUENCY UNKNOWN
     Route: 048
     Dates: start: 20230904
  2. KEYTRUDA [Suspect]
     Active Substance: PEMBROLIZUMAB
     Indication: Renal cell carcinoma
     Route: 042
     Dates: start: 20230904
  3. KEYTRUDA [Suspect]
     Active Substance: PEMBROLIZUMAB
     Route: 042
     Dates: start: 20231004, end: 20231025
  4. KEYTRUDA [Suspect]
     Active Substance: PEMBROLIZUMAB
     Route: 042
     Dates: start: 202311

REACTIONS (6)
  - Hypertension [Unknown]
  - Altered state of consciousness [Recovered/Resolved]
  - Rash [Unknown]
  - Fatigue [Unknown]
  - Dysphonia [Unknown]
  - Somnolence [Unknown]

NARRATIVE: CASE EVENT DATE: 20230901
